FAERS Safety Report 5122650-X (Version None)
Quarter: 2006Q4

REPORT INFORMATION
  Report Type: 
  Country: None (occurrence: None)
  Receive Date: 20061004
  Receipt Date: 20060921
  Transmission Date: 20070319
  Serious: Yes (Hospitalization)
  Sender: FDA-Public Use
  Company Number: TPG2006A00442

PATIENT
  Age: 66 Year
  Sex: Male

DRUGS (3)
  1. LANSOPRAZOLE [Suspect]
     Indication: PROPHYLAXIS AGAINST GASTROINTESTINAL ULCER
     Dosage: 30 MG PER ORAL
     Route: 048
     Dates: start: 20051201, end: 20060228
  2. NSAID'S [Concomitant]
  3. ENALAPRIL MALEATE [Concomitant]

REACTIONS (4)
  - ABSCESS INTESTINAL [None]
  - CARDIAC FAILURE [None]
  - COLITIS COLLAGENOUS [None]
  - PULMONARY CONGESTION [None]
